FAERS Safety Report 9726794 (Version 1)
Quarter: 2013Q4

REPORT INFORMATION
  Report Type: Spontaneous
  Country: US (occurrence: US)
  Receive Date: 20131203
  Receipt Date: 20131203
  Transmission Date: 20140711
  Serious: No
  Sender: FDA-Public Use
  Company Number: US-NOVEN-13US006257

PATIENT
  Age: 65 Year
  Sex: Female

DRUGS (2)
  1. FENTANYL [Suspect]
     Indication: ARTHRITIS
     Dosage: 100 UG/HR EVERY 3 DAYS
     Route: 062
     Dates: start: 2003
  2. FENTANYL [Suspect]
     Dosage: 100 UG/HR EVERY 3 DAYS
     Route: 062
     Dates: start: 2003

REACTIONS (3)
  - Application site vesicles [Recovered/Resolved]
  - Application site pruritus [Not Recovered/Not Resolved]
  - Product quality issue [Not Recovered/Not Resolved]
